FAERS Safety Report 25713257 (Version 3)
Quarter: 2025Q4

REPORT INFORMATION
  Report Type: Report from Study
  Country: US (occurrence: US)
  Receive Date: 20250822
  Receipt Date: 20251126
  Transmission Date: 20260118
  Serious: No
  Sender: SANDOZ
  Company Number: US-SANDOZ-SDZ2025US060539

PATIENT
  Age: 57 Year
  Sex: Female

DRUGS (2)
  1. OMNITROPE [Suspect]
     Active Substance: SOMATROPIN
     Indication: Product used for unknown indication
     Dosage: OMNITROPE 10 0.4 MG S/C DAILY
     Route: 058
     Dates: start: 20250820
  2. OMNITROPE [Suspect]
     Active Substance: SOMATROPIN
     Indication: Product used for unknown indication
     Dosage: OMNITROPE 10 0.4 MG S/C DAILY
     Route: 058
     Dates: start: 20250820

REACTIONS (3)
  - Circumstance or information capable of leading to device use error [Unknown]
  - Device leakage [Unknown]
  - Drug dose omission by device [Unknown]

NARRATIVE: CASE EVENT DATE: 20250801
